FAERS Safety Report 4675908-2 (Version None)
Quarter: 2005Q2

REPORT INFORMATION
  Report Type: 
  Country: None (occurrence: None)
  Receive Date: 20050527
  Receipt Date: 20050519
  Transmission Date: 20051028
  Serious: Yes (Hospitalization)
  Sender: FDA-Public Use
  Company Number: JP-JNJFOC-20041200926

PATIENT
  Sex: Female

DRUGS (11)
  1. REMICADE [Suspect]
     Route: 042
  2. REMICADE [Suspect]
     Route: 042
  3. REMICADE [Suspect]
     Indication: RHEUMATOID ARTHRITIS
     Route: 042
  4. RHEUMATREX [Suspect]
     Indication: RHEUMATOID ARTHRITIS
     Route: 049
  5. RIMATIL [Suspect]
     Indication: RHEUMATOID ARTHRITIS
     Route: 049
  6. METHOTREXATE [Concomitant]
  7. PREDONINE [Concomitant]
     Indication: RHEUMATOID ARTHRITIS
     Dosage: 5MG, 1.5 TABS DAILY
     Route: 049
  8. NAPROXEN [Concomitant]
     Indication: RHEUMATOID ARTHRITIS
     Route: 049
  9. NEUROTROPIN [Concomitant]
     Indication: RHEUMATOID ARTHRITIS
     Route: 049
  10. NORVASC [Concomitant]
     Route: 049
  11. SELBEX [Concomitant]
     Route: 049

REACTIONS (6)
  - ASPERGILLOSIS [None]
  - CANDIDIASIS [None]
  - HAEMOPHILUS INFECTION [None]
  - PNEUMONIA [None]
  - PSEUDOMONAS INFECTION [None]
  - RESPIRATORY FAILURE [None]
